FAERS Safety Report 6568689-9 (Version None)
Quarter: 2010Q1

REPORT INFORMATION
  Report Type: 
  Country: None (occurrence: None)
  Receive Date: 20100203
  Receipt Date: 20100125
  Transmission Date: 20100710
  Serious: Yes (Hospitalization)
  Sender: FDA-Public Use
  Company Number: GXKR2010US01149

PATIENT
  Age: 59 Year
  Sex: Male

DRUGS (8)
  1. PROPRANOLOL (NGX) [Suspect]
  2. LISINOPRIL [Concomitant]
  3. FUROSEMIDE [Concomitant]
  4. SPIRONOLACTONE [Concomitant]
  5. INSULIN [Concomitant]
  6. GABAPENTIN [Concomitant]
  7. LACTULOSE [Concomitant]
  8. SERTRALINE HCL [Concomitant]

REACTIONS (8)
  - ABDOMINAL DISTENSION [None]
  - ABDOMINAL PAIN [None]
  - ASCITES [None]
  - FIBROSIS [None]
  - LAPAROTOMY [None]
  - SCLEROSING ENCAPSULATING PERITONITIS [None]
  - SMALL INTESTINAL OBSTRUCTION [None]
  - VOMITING [None]
